FAERS Safety Report 8623409-9 (Version None)
Quarter: 2012Q3

REPORT INFORMATION
  Report Type: 
  Country: None (occurrence: None)
  Receive Date: 20120827
  Receipt Date: 20120820
  Transmission Date: 20120928
  Serious: Yes (Other)
  Sender: FDA-Public Use
  Company Number: PHHY2012GB071925

PATIENT

DRUGS (7)
  1. CHLORPROMAZINE HCL [Suspect]
     Indication: ANXIETY
     Dosage: 25 MG, QD
     Route: 048
     Dates: start: 20110922
  2. DIHYDROCODEINE BITARTRATE INJ [Suspect]
     Indication: PAIN
     Route: 048
     Dates: start: 20100315
  3. CITALOPRAM HYDROBROMIDE [Suspect]
     Indication: DEPRESSION
     Dosage: 20 MG, QD
     Route: 048
     Dates: start: 20111004
  4. PROPRANOLOL [Suspect]
     Indication: ANXIETY
     Dosage: 10 MG, BID
     Route: 048
     Dates: start: 20090505
  5. FLUOXETINE HCL [Suspect]
     Indication: DEPRESSION
     Dosage: 60 MG, QD
     Dates: start: 20100621, end: 20111004
  6. OMEPRAZOLE [Suspect]
     Indication: DYSPEPSIA
     Dosage: 20 MG, QD
     Route: 048
     Dates: start: 20080919
  7. SEROQUEL [Suspect]
     Indication: DEPRESSION
     Dosage: 200 MG, BID
     Route: 048
     Dates: start: 20110323, end: 20110910

REACTIONS (3)
  - PRE-ECLAMPSIA [None]
  - MATERNAL EXPOSURE DURING PREGNANCY [None]
  - PREMATURE LABOUR [None]
